FAERS Safety Report 6977433 (Version 10)
Quarter: 2018Q3

REPORT INFORMATION
  Report Type: Spontaneous
  Country: CY (occurrence: CY)
  Receive Date: 20090424
  Receipt Date: 20180928
  Transmission Date: 20181010
  Serious: Yes (Life-Threatening, Hospitalization, Disabling, Other)
  Sender: FDA-Public Use
  Company Number: CY-PFIZER INC-2009198817

PATIENT
  Age: 16 Year
  Sex: Male

DRUGS (7)
  1. PREDNISOLONE. [Concomitant]
     Active Substance: PREDNISOLONE
     Indication: INFLUENZA LIKE ILLNESS
     Dosage: UNK
  2. CO?AMOXICLAVE [Suspect]
     Active Substance: AMOXICILLIN\CLAVULANATE POTASSIUM
     Indication: INFLUENZA LIKE ILLNESS
     Dosage: UNK
  3. FORMOTEROL [Concomitant]
     Active Substance: FORMOTEROL
     Indication: INFLUENZA LIKE ILLNESS
     Dosage: UNK
     Route: 055
     Dates: start: 20090329
  4. ZITHROMAX [Suspect]
     Active Substance: AZITHROMYCIN DIHYDRATE
     Indication: VIRAL INFECTION
     Dosage: 500 MG, 1X/DAY
     Route: 048
     Dates: start: 20090329, end: 20090401
  5. ZITHROMAX [Suspect]
     Active Substance: AZITHROMYCIN DIHYDRATE
     Indication: UPPER RESPIRATORY TRACT INFECTION
  6. ZITHROMAX [Suspect]
     Active Substance: AZITHROMYCIN DIHYDRATE
     Indication: INFLUENZA LIKE ILLNESS
  7. ZITHROMAX [Suspect]
     Active Substance: AZITHROMYCIN DIHYDRATE
     Indication: BRONCHITIS

REACTIONS (11)
  - Acute hepatic failure [Recovered/Resolved]
  - Drug-induced liver injury [Unknown]
  - Neurological symptom [Recovered/Resolved]
  - Lymphoid tissue hyperplasia [Unknown]
  - Bone marrow disorder [Not Recovered/Not Resolved]
  - Hepatic encephalopathy [Unknown]
  - Drug ineffective [Recovered/Resolved]
  - Hepatic necrosis [Recovered/Resolved]
  - Renal failure [Recovering/Resolving]
  - Intracranial pressure increased [Recovered/Resolved]
  - Encephalopathy [Unknown]

NARRATIVE: CASE EVENT DATE: 2009
